FAERS Safety Report 10267734 (Version 2)
Quarter: 2014Q2

REPORT INFORMATION
  Report Type: Spontaneous
  Country: JP (occurrence: JP)
  Receive Date: 20140630
  Receipt Date: 20140630
  Transmission Date: 20141212
  Serious: Yes (Death, Other)
  Sender: FDA-Public Use
  Company Number: JP-BAYER-2011-021428

PATIENT
  Age: 53 Year
  Sex: Female

DRUGS (2)
  1. NEXAVAR [Suspect]
     Indication: HEPATOCELLULAR CARCINOMA
     Dosage: 400 MG, BID
     Route: 048
     Dates: start: 20110210, end: 20110214
  2. LOXONIN [Concomitant]
     Dosage: UNK
     Route: 048

REACTIONS (2)
  - Ulcer haemorrhage [Recovered/Resolved]
  - Hepatocellular carcinoma [Fatal]
